FAERS Safety Report 4553634-8 (Version None)
Quarter: 2004Q4

REPORT INFORMATION
  Report Type: 
  Country: None (occurrence: None)
  Receive Date: 20041227
  Receipt Date: 20041019
  Transmission Date: 20050328
  Serious: No
  Sender: FDA-Public Use
  Company Number: 04P-163-0277922-00

PATIENT
  Age: 49 Year
  Sex: Female
  Weight: 46.2669 kg

DRUGS (6)
  1. HUMIRA [Suspect]
     Indication: RHEUMATOID ARTHRITIS
     Dosage: 1 IN 2 WK, SUBCUTANEOUS
     Route: 058
     Dates: start: 20040910, end: 20040920
  2. FIORINAL-C 1/4 [Concomitant]
  3. MORPHINE SULFATE [Concomitant]
  4. IBUPROFEN [Concomitant]
  5. METHYLPREDNISOLONE SODIUM SUCCINATE [Concomitant]
  6. PREDNISONE [Concomitant]

REACTIONS (2)
  - INJECTION SITE SWELLING [None]
  - URTICARIA [None]
